FAERS Safety Report 18815614 (Version 1)
Quarter: 2021Q1

REPORT INFORMATION
  Report Type: Spontaneous
  Country: US (occurrence: US)
  Receive Date: 20210131
  Receipt Date: 20210131
  Transmission Date: 20210419
  Serious: Yes (Disabling)
  Sender: FDA-Public Use
  Company Number: None

PATIENT
  Age: 40 Year
  Sex: Female
  Weight: 67.5 kg

DRUGS (9)
  1. ACETAMINOPHEN. [Concomitant]
     Active Substance: ACETAMINOPHEN
  2. PURELL [Suspect]
     Active Substance: ALCOHOL
     Indication: COVID-19 PROPHYLAXIS
     Dosage: ?          OTHER FREQUENCY:20+/DAY HOSPITALRN;?
     Route: 061
     Dates: start: 20191111, end: 20210121
  3. 3M AVAGARD D [Suspect]
     Active Substance: ALCOHOL
     Indication: COVID-19 PROPHYLAXIS
     Dosage: FREQUENCY: 20+/DAY HOSPITALRN
     Route: 061
     Dates: start: 20191111, end: 20210121
  4. CEPHALY [Concomitant]
  5. BOSWELLIA [Concomitant]
     Active Substance: DIETARY SUPPLEMENT\HERBALS
  6. NUVARING [Suspect]
     Active Substance: ETHINYL ESTRADIOL\ETONOGESTREL
  7. VITAMINS [Concomitant]
     Active Substance: VITAMINS
  8. TUMERIC [Concomitant]
     Active Substance: HERBALS\TURMERIC
  9. ADDERALL [Concomitant]
     Active Substance: AMPHETAMINE ASPARTATE\AMPHETAMINE SULFATE\DEXTROAMPHETAMINE SACCHARATE\DEXTROAMPHETAMINE SULFATE

REACTIONS (2)
  - Neuropathy peripheral [None]
  - Raynaud^s phenomenon [None]

NARRATIVE: CASE EVENT DATE: 20200301
